FAERS Safety Report 6040147-X (Version None)
Quarter: 2009Q1

REPORT INFORMATION
  Report Type: 
  Country: None (occurrence: None)
  Receive Date: 20090116
  Receipt Date: 20071224
  Transmission Date: 20090719
  Serious: No
  Sender: FDA-Public Use
  Company Number: US-BRISTOL-MYERS SQUIBB COMPANY-14024558

PATIENT
  Age: 59 Year
  Sex: Female
  Weight: 93 kg

DRUGS (1)
  1. ABILIFY [Suspect]
     Indication: PSYCHOTIC DISORDER
     Route: 048

REACTIONS (3)
  - MUSCLE SPASMS [None]
  - PAIN IN EXTREMITY [None]
  - TREMOR [None]
